APPROVED DRUG PRODUCT: CHLORPROMAZINE HYDROCHLORIDE
Active Ingredient: CHLORPROMAZINE HYDROCHLORIDE
Strength: 50MG
Dosage Form/Route: TABLET;ORAL
Application: A214256 | Product #003
Applicant: SUN PHARMACEUTICAL INDUSTRIES LTD
Approved: Oct 26, 2020 | RLD: No | RS: No | Type: DISCN